FAERS Safety Report 13891486 (Version 1)
Quarter: 2017Q3

REPORT INFORMATION
  Report Type: Spontaneous
  Country: DE (occurrence: DE)
  Receive Date: 20170822
  Receipt Date: 20170822
  Transmission Date: 20171127
  Serious: Yes (Hospitalization)
  Sender: FDA-Public Use
  Company Number: DE-JNJFOC-20170815500

PATIENT
  Age: 4 Decade
  Sex: Male

DRUGS (2)
  1. REGAINE SCHAUM MAENNER [Suspect]
     Active Substance: MINOXIDIL
     Route: 065
  2. REGAINE SCHAUM MAENNER [Suspect]
     Active Substance: MINOXIDIL
     Indication: PRODUCT USED FOR UNKNOWN INDICATION
     Route: 065
     Dates: end: 20170810

REACTIONS (5)
  - Cardiac disorder [Recovering/Resolving]
  - Non-cardiac chest pain [Recovering/Resolving]
  - Dizziness [Recovered/Resolved]
  - Tachycardia [Recovering/Resolving]
  - Panic attack [Recovering/Resolving]

NARRATIVE: CASE EVENT DATE: 20170815
